FAERS Safety Report 20385831 (Version 1)
Quarter: 2022Q1

REPORT INFORMATION
  Report Type: Spontaneous
  Country: US (occurrence: US)
  Receive Date: 20220127
  Receipt Date: 20220127
  Transmission Date: 20220423
  Serious: No
  Sender: FDA-Public Use
  Company Number: US-ALLERGAN-2127554US

PATIENT
  Age: 74 Year
  Sex: Male

DRUGS (2)
  1. BOTOX [Suspect]
     Active Substance: ONABOTULINUMTOXINA
     Indication: Knee deformity
     Dosage: UNK UNK, SINGLE
     Dates: start: 20210707, end: 20210707
  2. BOTOX [Suspect]
     Active Substance: ONABOTULINUMTOXINA
     Dosage: UNK UNK, SINGLE
     Dates: start: 20210707, end: 20210707

REACTIONS (2)
  - Off label use [Unknown]
  - Muscular weakness [Not Recovered/Not Resolved]
